FAERS Safety Report 10707439 (Version 2)
Quarter: 2015Q2

REPORT INFORMATION
  Report Type: Spontaneous
  Country: DE (occurrence: DE)
  Receive Date: 20150113
  Receipt Date: 20150420
  Transmission Date: 20150821
  Serious: Yes (Other)
  Sender: FDA-Public Use
  Company Number: DE-ASTELLAS-2015US000919

PATIENT
  Sex: Male

DRUGS (3)
  1. XTANDI [Suspect]
     Active Substance: ENZALUTAMIDE
     Indication: PROSTATE CANCER
     Dosage: 160 MG (4-0-0), ONCE DAILY
     Route: 048
     Dates: start: 20141104, end: 20141228
  2. PROFACT [Concomitant]
     Active Substance: BUSERELIN ACETATE
     Indication: PROSTATE CANCER
     Dosage: UNK UNK, ONCE EVERY 3 MONTHS
     Route: 058
  3. ZOLENDRA [Concomitant]
     Indication: PROSTATE CANCER
     Dosage: UNK, MONTHLY
     Route: 042

REACTIONS (4)
  - Vomiting [Recovered/Resolved]
  - Nausea [Recovered/Resolved]
  - Disease progression [Unknown]
  - Fatigue [Recovered/Resolved]

NARRATIVE: CASE EVENT DATE: 20141116
